FAERS Safety Report 9554430 (Version 3)
Quarter: 2013Q4

REPORT INFORMATION
  Report Type: Spontaneous
  Country: US (occurrence: US)
  Receive Date: 20130925
  Receipt Date: 20131202
  Transmission Date: 20140711
  Serious: Yes (Hospitalization, Other)
  Sender: FDA-Public Use
  Company Number: US-MPIJNJ-2013MPI000205

PATIENT
  Age: 59 Year
  Sex: Female
  Weight: 83.45 kg

DRUGS (10)
  1. VELCADE [Suspect]
     Indication: PLASMA CELL MYELOMA
     Dosage: 1.3 MG/M2, DAYS 1, 4, 8 AND 11 FOLLOWED BY 10 DAYS REST PERIOD
     Route: 042
     Dates: start: 20130715, end: 20130725
  2. REVLIMID [Suspect]
     Indication: PLASMA CELL MYELOMA
     Dosage: 25 MG, ON DAYS 1-14 OF 21 DAYS
     Route: 048
  3. DEXAMETHASONE [Suspect]
     Indication: PLASMA CELL MYELOMA
     Dosage: 10 MG, QD
     Route: 048
     Dates: start: 20130709, end: 20130726
  4. DEXAMETHASONE [Suspect]
     Dosage: ON DAYS 1, 2, 4, 5, 8, 9, 11 AND 12
     Route: 048
     Dates: end: 20130916
  5. PRILOSEC                           /00661201/ [Concomitant]
     Dosage: 20 MG, QD
     Route: 048
     Dates: start: 20130712
  6. XANAX [Concomitant]
     Dosage: 0.25 MG, UNK
     Route: 048
     Dates: start: 20130722
  7. ACYCLOVIR                          /00587301/ [Concomitant]
     Dosage: 400 MG, QD
     Route: 048
  8. PROCHLORPERAZINE MALEATE [Concomitant]
     Dosage: 10 MG, UNK
     Route: 048
     Dates: start: 20130712, end: 20130916
  9. ASPIRIN [Concomitant]
  10. ZOMETA [Suspect]
     Indication: PLASMA CELL MYELOMA
     Dosage: 4 MG, MONTHLY
     Route: 042

REACTIONS (7)
  - Small intestinal obstruction [Recovered/Resolved]
  - Enterocolitis [Recovered/Resolved]
  - Hypocalcaemia [Recovered/Resolved]
  - Atrial fibrillation [Recovered/Resolved]
  - Pancytopenia [Recovered/Resolved]
  - Asthenia [Recovered/Resolved]
  - Dermatitis [Recovered/Resolved]
